FAERS Safety Report 11764507 (Version 1)
Quarter: 2015Q4

REPORT INFORMATION
  Report Type: Spontaneous
  Country: US (occurrence: US)
  Receive Date: 20151120
  Receipt Date: 20151120
  Transmission Date: 20160304
  Serious: No
  Sender: FDA-Public Use
  Company Number: US-ELI_LILLY_AND_COMPANY-US201302000825

PATIENT
  Age: 81 Year
  Sex: Female

DRUGS (2)
  1. FORTEO [Suspect]
     Active Substance: TERIPARATIDE
     Indication: OSTEOPOROSIS
     Dosage: 20 UG, QD
     Route: 065
     Dates: start: 20130128, end: 201302
  2. FORTEO [Suspect]
     Active Substance: TERIPARATIDE
     Dosage: 20 UG, QD
     Route: 065

REACTIONS (19)
  - Malaise [Recovered/Resolved]
  - Disturbance in attention [Recovered/Resolved]
  - Rash [Unknown]
  - Emotional disorder [Unknown]
  - Frustration [Unknown]
  - Fatigue [Recovered/Resolved]
  - Sleep disorder due to a general medical condition [Recovered/Resolved]
  - Thrombosis [Unknown]
  - Depressed level of consciousness [Recovered/Resolved]
  - Coordination abnormal [Recovered/Resolved]
  - Feeling abnormal [Recovered/Resolved]
  - Nausea [Recovered/Resolved]
  - Contusion [Unknown]
  - Intentional product misuse [Unknown]
  - Anxiety [Unknown]
  - Dizziness [Recovered/Resolved]
  - Injection site bruising [Unknown]
  - Pain [Not Recovered/Not Resolved]
  - Rash [Recovering/Resolving]

NARRATIVE: CASE EVENT DATE: 20130131
